FAERS Safety Report 5255314-2 (Version None)
Quarter: 2007Q1

REPORT INFORMATION
  Report Type: 
  Country: None (occurrence: None)
  Receive Date: 20070305
  Receipt Date: 20070222
  Transmission Date: 20070707
  Serious: Yes (Hospitalization, Congenital Anomaly, Other)
  Sender: FDA-Public Use
  Company Number: JP-JPN-A200700161

PATIENT
  Sex: Female

DRUGS (6)
  1. EPIVIR [Suspect]
     Indication: HIV INFECTION
     Dosage: 150MG TWICE PER DAY
     Dates: start: 20040213
  2. RETROVIR [Suspect]
     Indication: HIV INFECTION
     Dates: start: 20040213
  3. VIRACEPT [Suspect]
     Indication: HIV INFECTION
     Dates: start: 20040213
  4. RETROVIR [Suspect]
     Dosage: .46ML FOUR TIMES PER DAY
     Route: 048
     Dates: start: 20040622, end: 20040803
  5. ESPO [Concomitant]
     Route: 058
     Dates: start: 20040625, end: 20040722
  6. ESPO [Concomitant]
     Route: 058
     Dates: start: 20040727, end: 20040805

REACTIONS (3)
  - ANAEMIA [None]
  - CLEFT LIP AND PALATE [None]
  - DRUG EXPOSURE VIA BREAST MILK [None]
